FAERS Safety Report 9052564 (Version 1)
Quarter: 2013Q1

REPORT INFORMATION
  Report Type: Spontaneous
  Country: US (occurrence: US)
  Receive Date: 20130207
  Receipt Date: 20130207
  Transmission Date: 20140127
  Serious: Yes (Other)
  Sender: FDA-Public Use
  Company Number: US-BRISTOL-MYERS SQUIBB COMPANY-17329509

PATIENT
  Age: 43 Year
  Sex: Female
  Weight: 76.64 kg

DRUGS (2)
  1. ORENCIA [Suspect]
     Indication: RHEUMATOID ARTHRITIS
     Dosage: LAST INF: 03JAN2013
     Route: 042
  2. BENADRYL [Suspect]

REACTIONS (2)
  - Erythema [Unknown]
  - Feeling abnormal [Unknown]
